FAERS Safety Report 18967420 (Version 2)
Quarter: 2021Q1

REPORT INFORMATION
  Report Type: Report from Study
  Country: None (occurrence: CA)
  Receive Date: 20210303
  Receipt Date: 20210311
  Transmission Date: 20210420
  Serious: No
  Sender: FDA-Public Use
  Company Number: CA-ABBVIE-21K-028-3793170-00

PATIENT
  Sex: Female

DRUGS (2)
  1. HUMIRA [Suspect]
     Active Substance: ADALIMUMAB
     Indication: CROHN^S DISEASE
     Route: 058
  2. HUMIRA [Suspect]
     Active Substance: ADALIMUMAB
     Route: 058
     Dates: start: 20160828

REACTIONS (5)
  - Drug level abnormal [Unknown]
  - Pain [Not Recovered/Not Resolved]
  - Mouth haemorrhage [Recovered/Resolved]
  - Faecal calprotectin abnormal [Unknown]
  - Crohn^s disease [Unknown]
